FAERS Safety Report 9603785 (Version 2)
Quarter: 2013Q4

REPORT INFORMATION
  Report Type: Report from Study
  Country: US (occurrence: US)
  Receive Date: 20131008
  Receipt Date: 20131008
  Transmission Date: 20140711
  Serious: Yes (Death, Other)
  Sender: FDA-Public Use
  Company Number: US-ROCHE-1262127

PATIENT
  Age: 59 Year
  Sex: Female

DRUGS (15)
  1. HERCEPTIN [Suspect]
     Indication: BREAST CANCER
     Route: 065
     Dates: start: 199907
  2. HERCEPTIN [Suspect]
     Indication: BONE CANCER
  3. HERCEPTIN [Suspect]
     Indication: BONE CANCER
  4. KADCYLA [Suspect]
     Indication: PRODUCT USED FOR UNKNOWN INDICATION
     Route: 065
  5. AMLODIPINE [Concomitant]
     Route: 065
  6. ATIVAN [Concomitant]
  7. CARVEDILOL [Concomitant]
  8. CELEBREX [Concomitant]
  9. IMODIUM [Concomitant]
  10. LASIX [Concomitant]
  11. ONDANSETRON [Concomitant]
  12. LOSARTAN [Concomitant]
  13. SANCUSO [Concomitant]
  14. SOTALOL [Concomitant]
  15. TAMOXIFEN [Concomitant]
     Route: 065
     Dates: start: 199907

REACTIONS (18)
  - Death [Fatal]
  - Diarrhoea [Unknown]
  - Hepatic lesion [Unknown]
  - Fatigue [Unknown]
  - Metastases to bone [Unknown]
  - Nausea [Unknown]
  - Decreased appetite [Unknown]
  - Eating disorder [Unknown]
  - Dyspnoea [Unknown]
  - Weight decreased [Unknown]
  - Tumour marker increased [Unknown]
  - Chest discomfort [Unknown]
  - Neoplasm [Unknown]
  - Femur fracture [Unknown]
  - Oedema peripheral [Unknown]
  - Pain in extremity [Unknown]
  - Dyspnoea [Recovered/Resolved]
  - Laboratory test abnormal [Unknown]
